FAERS Safety Report 5849847-5 (Version None)
Quarter: 2008Q3

REPORT INFORMATION
  Report Type: 
  Country: None (occurrence: None)
  Receive Date: 20080818
  Receipt Date: 20080818
  Transmission Date: 20090109
  Serious: Yes (Other)
  Sender: FDA-Public Use
  Company Number: None

PATIENT
  Age: 70 Year
  Sex: Female
  Weight: 70.3075 kg

DRUGS (2)
  1. VOLTAREN [Suspect]
     Indication: JOINT SPRAIN
     Dosage: 2 CM BID TRANSDERMAL
     Route: 062
     Dates: start: 20080610, end: 20080614
  2. VOLTAREN [Suspect]
     Indication: ARTHRALGIA
     Dates: start: 20080709, end: 20080711

REACTIONS (1)
  - LOCAL SWELLING [None]
